FAERS Safety Report 11568300 (Version 1)
Quarter: 2015Q3

REPORT INFORMATION
  Report Type: Spontaneous
  Country: FR (occurrence: FR)
  Receive Date: 20150929
  Receipt Date: 20150929
  Transmission Date: 20151125
  Serious: Yes (Other)
  Sender: FDA-Public Use
  Company Number: FR-CORCEPT THERAPEUTICS INC.-FR-2015CRT000608

PATIENT
  Age: 35 Year
  Sex: Female
  Weight: 71 kg

DRUGS (4)
  1. PARACETAMOL [Concomitant]
     Active Substance: ACETAMINOPHEN
     Indication: ANALGESIC THERAPY
     Dosage: 1 G, TID
     Dates: start: 20111128, end: 20111205
  2. CYTOTEC [Suspect]
     Active Substance: MISOPROSTOL
     Indication: ABORTION INDUCED
     Dosage: 800 ?G, QD
     Route: 048
     Dates: start: 20111110, end: 20111110
  3. MIFEPRISTONE [Suspect]
     Active Substance: MIFEPRISTONE
     Indication: ABORTION INDUCED
     Dosage: 600 MG, QD
     Route: 048
     Dates: start: 20111108, end: 20111108
  4. AUGMENTIN [Concomitant]
     Active Substance: AMOXICILLIN\CLAVULANATE POTASSIUM
     Indication: ANTIBIOTIC THERAPY
     Dosage: 1 G, TID
     Route: 048
     Dates: start: 20111128, end: 20111205

REACTIONS (5)
  - Product use issue [Unknown]
  - Abortion induced incomplete [Recovered/Resolved]
  - Endometritis [Recovered/Resolved]
  - Metrorrhagia [Recovered/Resolved]
  - Incorrect dose administered [Unknown]

NARRATIVE: CASE EVENT DATE: 20111128
